FAERS Safety Report 6834276-8 (Version None)
Quarter: 2010Q3

REPORT INFORMATION
  Report Type: 
  Country: None (occurrence: None)
  Receive Date: 20100712
  Receipt Date: 20070922
  Transmission Date: 20110219
  Serious: No
  Sender: FDA-Public Use
  Company Number: US-PFIZER INC-2007027963

PATIENT
  Sex: Female
  Weight: 82.1 kg

DRUGS (5)
  1. CHANTIX [Suspect]
     Indication: SMOKING CESSATION THERAPY
     Dates: start: 20070323, end: 20070325
  2. WELLBUTRIN [Concomitant]
  3. ZANAFLEX [Concomitant]
  4. DIAZEPAM [Concomitant]
  5. MORPHINE SULFATE [Concomitant]

REACTIONS (6)
  - ABDOMINAL PAIN UPPER [None]
  - FEELING ABNORMAL [None]
  - GASTROENTERITIS VIRAL [None]
  - HEADACHE [None]
  - RASH MACULAR [None]
  - TREMOR [None]
